FAERS Safety Report 18472646 (Version 1)
Quarter: 2020Q4

REPORT INFORMATION
  Report Type: Spontaneous
  Country: US (occurrence: US)
  Receive Date: 20201104
  Receipt Date: 20201104
  Transmission Date: 20210114
  Serious: Yes (Death, Other)
  Sender: FDA-Public Use
  Company Number: None

PATIENT
  Age: 28 Year
  Sex: Male
  Weight: 317.6 kg

DRUGS (2)
  1. CHLORHEXIDINE  GLUCONATE ORAL RINSE 0.12% [Suspect]
     Active Substance: CHLORHEXIDINE GLUCONATE
     Indication: DENTAL DISORDER PROPHYLAXIS
     Route: 002
     Dates: start: 20201019, end: 20201029
  2. CHLORHEXIDINE  GLUCONATE ORAL RINSE 0.12% [Suspect]
     Active Substance: CHLORHEXIDINE GLUCONATE
     Indication: PHARYNGEAL DISORDER
     Route: 002
     Dates: start: 20201019, end: 20201029

REACTIONS (6)
  - COVID-19 [None]
  - Sputum culture positive [None]
  - Product quality issue [None]
  - Burkholderia test positive [None]
  - Recalled product administered [None]
  - Product contamination microbial [None]

NARRATIVE: CASE EVENT DATE: 20201024
